FAERS Safety Report 10304336 (Version 2)
Quarter: 2014Q3

REPORT INFORMATION
  Report Type: Spontaneous
  Country: DE (occurrence: DE)
  Receive Date: 20140715
  Receipt Date: 20140715
  Transmission Date: 20150326
  Serious: Yes (Other)
  Sender: FDA-Public Use
  Company Number: DE-UCBSA-2014000710

PATIENT
  Sex: Male
  Weight: 37 kg

DRUGS (6)
  1. VIMPAT [Suspect]
     Active Substance: LACOSAMIDE
     Indication: EPILEPSY
     Dosage: 100 MG, 2X/DAY (BID)
     Route: 048
     Dates: start: 201311, end: 201404
  2. ORFIRIL [Concomitant]
     Active Substance: VALPROIC ACID
     Indication: EPILEPSY
  3. ORFIRIL [Concomitant]
     Active Substance: VALPROIC ACID
     Indication: LENNOX-GASTAUT SYNDROME
  4. VIMPAT [Suspect]
     Active Substance: LACOSAMIDE
     Indication: LENNOX-GASTAUT SYNDROME
     Dosage: 50-0-100MG; 2X/DAY (BID)
     Route: 048
     Dates: start: 201302, end: 201311
  5. VALPROAT [Concomitant]
     Active Substance: VALPROATE SODIUM
     Indication: LENNOX-GASTAUT SYNDROME
     Dosage: 300 MG, ONCE DAILY (QD)
     Route: 048
  6. VALPROAT [Concomitant]
     Active Substance: VALPROATE SODIUM
     Indication: EPILEPSY

REACTIONS (5)
  - Increased appetite [Recovering/Resolving]
  - Dysarthria [Recovering/Resolving]
  - Autism [Recovering/Resolving]
  - Aggression [Recovering/Resolving]
  - Weight increased [Recovering/Resolving]

NARRATIVE: CASE EVENT DATE: 2013
